FAERS Safety Report 20727982 (Version 18)
Quarter: 2023Q4

REPORT INFORMATION
  Report Type: Spontaneous
  Country: CA (occurrence: CA)
  Receive Date: 20220419
  Receipt Date: 20231221
  Transmission Date: 20240110
  Serious: Yes (Other)
  Sender: FDA-Public Use
  Company Number: CA-CELLTRION INC.-2020CA030686

PATIENT

DRUGS (38)
  1. INFLECTRA [Suspect]
     Active Substance: INFLIXIMAB-DYYB
     Indication: Crohn^s disease
     Dosage: 600 MG, EVERY 4 WEEKS
     Route: 042
     Dates: start: 20210112, end: 20210112
  2. INFLECTRA [Suspect]
     Active Substance: INFLIXIMAB-DYYB
     Dosage: 600 MG, EVERY 4 WEEKS
     Route: 042
     Dates: start: 20210112, end: 20221017
  3. INFLECTRA [Suspect]
     Active Substance: INFLIXIMAB-DYYB
     Dosage: 600 MG, EVERY 4 WEEKS
     Route: 042
     Dates: start: 20210209
  4. INFLECTRA [Suspect]
     Active Substance: INFLIXIMAB-DYYB
     Dosage: 600 MG, EVERY 4 WEEKS
     Route: 042
     Dates: start: 20210309
  5. INFLECTRA [Suspect]
     Active Substance: INFLIXIMAB-DYYB
     Dosage: 600 MG, EVERY 4 WEEKS
     Route: 042
     Dates: start: 20210406
  6. INFLECTRA [Suspect]
     Active Substance: INFLIXIMAB-DYYB
     Dosage: 600 MG, EVERY 4 WEEKS
     Route: 042
     Dates: start: 20210504
  7. INFLECTRA [Suspect]
     Active Substance: INFLIXIMAB-DYYB
     Dosage: 600 MG EVERY 4 WEEK
     Route: 042
     Dates: start: 20210602
  8. INFLECTRA [Suspect]
     Active Substance: INFLIXIMAB-DYYB
     Dosage: 600 MG EVERY 4 WEEK
     Route: 042
     Dates: start: 20210628
  9. INFLECTRA [Suspect]
     Active Substance: INFLIXIMAB-DYYB
     Dosage: 600 MG EVERY 4 WEEK
     Route: 042
     Dates: start: 20210726
  10. INFLECTRA [Suspect]
     Active Substance: INFLIXIMAB-DYYB
     Dosage: 600 MG EVERY 4 WEEK
     Route: 042
     Dates: start: 20210824
  11. INFLECTRA [Suspect]
     Active Substance: INFLIXIMAB-DYYB
     Dosage: 600 MG EVERY 4 WEEK
     Route: 042
     Dates: start: 20211117
  12. INFLECTRA [Suspect]
     Active Substance: INFLIXIMAB-DYYB
     Dosage: 600 MG EVERY 4 WEEK
     Route: 042
     Dates: start: 20211117
  13. INFLECTRA [Suspect]
     Active Substance: INFLIXIMAB-DYYB
     Dosage: 600 MG EVERY 4 WEEK
     Route: 042
     Dates: start: 20211117
  14. INFLECTRA [Suspect]
     Active Substance: INFLIXIMAB-DYYB
     Dosage: 600 MG EVERY 4 WEEK
     Route: 042
     Dates: start: 20211215
  15. INFLECTRA [Suspect]
     Active Substance: INFLIXIMAB-DYYB
     Dosage: 600 MG EVERY 4 WEEK
     Route: 042
     Dates: start: 20220112
  16. INFLECTRA [Suspect]
     Active Substance: INFLIXIMAB-DYYB
     Dosage: 600 MG EVERY 4 WEEK
     Route: 042
     Dates: start: 20220209
  17. INFLECTRA [Suspect]
     Active Substance: INFLIXIMAB-DYYB
     Dosage: 600 MG EVERY 4 WEEK
     Route: 042
     Dates: start: 20220309
  18. INFLECTRA [Suspect]
     Active Substance: INFLIXIMAB-DYYB
     Dosage: 600 MG EVERY 4 WEEK
     Route: 042
     Dates: start: 20220406
  19. INFLECTRA [Suspect]
     Active Substance: INFLIXIMAB-DYYB
     Dosage: 600 MG EVERY 4 WEEKS
     Route: 042
     Dates: start: 20220602
  20. INFLECTRA [Suspect]
     Active Substance: INFLIXIMAB-DYYB
     Dosage: 600 MG EVERY 4 WEEKS
     Route: 042
     Dates: start: 20220628
  21. INFLECTRA [Suspect]
     Active Substance: INFLIXIMAB-DYYB
     Dosage: 600 MG EVERY 4 WEEKS
     Route: 042
     Dates: start: 20220726
  22. INFLECTRA [Suspect]
     Active Substance: INFLIXIMAB-DYYB
     Dosage: 600 MG EVERY 4 WEEKS
     Route: 042
     Dates: start: 20220825
  23. INFLECTRA [Suspect]
     Active Substance: INFLIXIMAB-DYYB
     Dosage: 600 MG, EVERY 4 WEEKS
     Route: 042
     Dates: start: 20220920, end: 20220920
  24. INFLECTRA [Suspect]
     Active Substance: INFLIXIMAB-DYYB
     Dosage: 600MG EVERY 4 WEEKS
     Route: 042
     Dates: start: 20221017
  25. INFLECTRA [Suspect]
     Active Substance: INFLIXIMAB-DYYB
     Dosage: 600MG EVERY 6 WEEKS
     Route: 042
     Dates: start: 20221128, end: 20230516
  26. INFLECTRA [Suspect]
     Active Substance: INFLIXIMAB-DYYB
     Dosage: 600MG EVERY 6 WEEKS
     Route: 042
     Dates: start: 20230109
  27. INFLECTRA [Suspect]
     Active Substance: INFLIXIMAB-DYYB
     Dosage: 600MG EVERY 6 WEEKS
     Route: 042
     Dates: start: 20230221
  28. INFLECTRA [Suspect]
     Active Substance: INFLIXIMAB-DYYB
     Dosage: 600MG EVERY 6 WEEKS
     Route: 042
     Dates: start: 20230404
  29. INFLECTRA [Suspect]
     Active Substance: INFLIXIMAB-DYYB
     Dosage: 600 MG EVERY 4 WEEKS (RESCUE DOSE)
     Dates: start: 20230530
  30. INFLECTRA [Suspect]
     Active Substance: INFLIXIMAB-DYYB
     Dosage: 600MG EVERY 4 WEEKS
     Route: 042
     Dates: start: 20230627
  31. INFLECTRA [Suspect]
     Active Substance: INFLIXIMAB-DYYB
     Dosage: 600MG EVERY 4 WEEKS
     Route: 042
     Dates: start: 20230725
  32. INFLECTRA [Suspect]
     Active Substance: INFLIXIMAB-DYYB
     Dosage: 600 MG EVERY 4 WEEKS
     Route: 042
     Dates: start: 20230824
  33. INFLECTRA [Suspect]
     Active Substance: INFLIXIMAB-DYYB
     Dosage: 600 MG EVERY 4 WEEKS
     Route: 042
     Dates: start: 20230919
  34. INFLECTRA [Suspect]
     Active Substance: INFLIXIMAB-DYYB
     Dosage: 600MG AFTER 4 WEEKS
     Route: 042
     Dates: start: 20231017
  35. INFLECTRA [Suspect]
     Active Substance: INFLIXIMAB-DYYB
     Dosage: 600 MG, EVERY 4 WEEKS
     Route: 042
     Dates: start: 20231114
  36. INFLECTRA [Suspect]
     Active Substance: INFLIXIMAB-DYYB
     Dosage: 600 MG, EVERY 4 WEEKS
     Route: 042
     Dates: start: 20231212
  37. FOLIC ACID [Concomitant]
     Active Substance: FOLIC ACID
     Dosage: 1 DF
  38. METHOTREXATE [Concomitant]
     Active Substance: METHOTREXATE
     Dosage: 1 DF

REACTIONS (10)
  - Weight increased [Unknown]
  - Prostatic disorder [Not Recovered/Not Resolved]
  - Weight decreased [Unknown]
  - Arthralgia [Recovered/Resolved]
  - Condition aggravated [Recovering/Resolving]
  - Heart rate decreased [Unknown]
  - Malaise [Not Recovered/Not Resolved]
  - Off label use [Unknown]
  - Off label use [Unknown]
  - Intentional product use issue [Unknown]

NARRATIVE: CASE EVENT DATE: 20210112
